FAERS Safety Report 12500369 (Version 2)
Quarter: 2016Q3

REPORT INFORMATION
  Report Type: Spontaneous
  Country: US (occurrence: US)
  Receive Date: 20160627
  Receipt Date: 20160706
  Transmission Date: 20161109
  Serious: No
  Sender: FDA-Public Use
  Company Number: US-PFIZER INC-2016309675

PATIENT
  Age: 48 Year
  Sex: Male
  Weight: 79 kg

DRUGS (4)
  1. METHADONE [Concomitant]
     Active Substance: METHADONE HYDROCHLORIDE
     Indication: DIABETIC NEUROPATHY
     Dosage: 20 MG, 2X/DAY  (10 MG TABLET, TWO TABLETS IN THE MORNING AND 2 IN THE EVENING)
     Dates: start: 2013
  2. HYDROCODONE [Concomitant]
     Active Substance: HYDROCODONE
     Indication: PAIN
     Dosage: 1 TABLET IN THE MORNING AND 1 IN THE EVENING IF NEEDED
     Dates: start: 2013
  3. LYRICA [Suspect]
     Active Substance: PREGABALIN
     Indication: DIABETIC NEPHROPATHY
     Dosage: 200 MG, 2X/DAY (ONCE IN THE MORNING AND ONCE AT NIGHT)
     Route: 048
     Dates: start: 2013
  4. LYRICA [Suspect]
     Active Substance: PREGABALIN
     Dosage: UNK

REACTIONS (1)
  - Drug ineffective [Not Recovered/Not Resolved]

NARRATIVE: CASE EVENT DATE: 2016
